FAERS Safety Report 5117294-X (Version None)
Quarter: 2006Q3

REPORT INFORMATION
  Report Type: 
  Country: None (occurrence: None)
  Receive Date: 20060926
  Receipt Date: 20060918
  Transmission Date: 20061208
  Serious: Yes (Hospitalization)
  Sender: FDA-Public Use
  Company Number: S06-USA-02282-01

PATIENT
  Age: 52 Year
  Sex: Female

DRUGS (16)
  1. THYROLAR-1 [Suspect]
     Indication: HYPOTHYROIDISM
     Dosage: 1.25 TABLET QD; PO
     Route: 048
     Dates: start: 20060101, end: 20060101
  2. THYROLAR-1 [Suspect]
     Indication: HYPOTHYROIDISM
     Dosage: 1.25 TABLET QD; PO
     Route: 048
     Dates: start: 20060614, end: 20060805
  3. THYROLAR-1 [Suspect]
     Indication: HYPOTHYROIDISM
     Dosage: 1 TABLET QD; PO
     Route: 048
     Dates: start: 20060807
  4. THYROLAR-1 [Suspect]
     Indication: HYPOTHYROIDISM
     Dosage: 1.5 TABLET, ONCE, PO
     Route: 048
     Dates: start: 20060806, end: 20060806
  5. THYROLAR-1 [Suspect]
     Indication: HYPOTHYROIDISM
     Dosage: 1 TABLET, QD; PO
     Route: 048
     Dates: start: 20060807
  6. THYROLAR-1 [Suspect]
     Indication: HYPOTHYROIDISM
     Dosage: 1.25 TABLET, UNK; PO
     Route: 048
     Dates: start: 20051201, end: 20051201
  7. THYROLAR-1 [Suspect]
     Indication: HYPOTHYROIDISM
     Dosage: 1 TABLET TIW; PO
     Route: 048
     Dates: start: 20051201, end: 20051201
  8. THYROLAR-1 [Suspect]
     Indication: HYPOTHYROIDISM
     Dosage: 1.25 TABLET, UNK. PO
     Route: 048
     Dates: start: 20051201, end: 20060101
  9. THYROLAR-1 [Suspect]
     Indication: HYPOTHYROIDISM
     Dosage: 1 TABLET TIW; PO
     Route: 048
     Dates: start: 20051201, end: 20060101
  10. THYROLAR-1 [Suspect]
     Indication: HYPOTHYROIDISM
     Dosage: 1.25 TABLET, UNK; PO
     Route: 048
     Dates: start: 20060101, end: 20060613
  11. THYROLAR-1 [Suspect]
     Indication: HYPOTHYROIDISM
     Dosage: 1 TABLET TIW; PO
     Route: 048
     Dates: start: 20060101, end: 20060613
  12. THYROID TAB [Suspect]
     Indication: HYPOTHYROIDISM
     Dosage: 15 MG QD; PO
     Route: 048
     Dates: start: 20051201, end: 20051201
  13. TIKOSYN [Concomitant]
  14. MESTINON [Concomitant]
  15. PREMARIN (ESTROGENS COJUGATED) [Concomitant]
  16. OSCAL (CALCIUM CARBONATE) [Concomitant]

REACTIONS (34)
  - ABASIA [None]
  - ABNORMAL SENSATION IN EYE [None]
  - ANXIETY [None]
  - ARRHYTHMIA [None]
  - ATRIAL TACHYCARDIA [None]
  - BLOOD PRESSURE DECREASED [None]
  - BLOOD THYROID STIMULATING HORMONE ABNORMAL [None]
  - CONSTIPATION [None]
  - DIZZINESS [None]
  - DYSLIPIDAEMIA [None]
  - DYSPNOEA [None]
  - ENDOCRINE OPHTHALMOPATHY [None]
  - EXOPHTHALMOS [None]
  - FATIGUE [None]
  - FEELING ABNORMAL [None]
  - FEELING JITTERY [None]
  - HEART RATE DECREASED [None]
  - HEART RATE IRREGULAR [None]
  - HYPERHIDROSIS [None]
  - HYPOTENSION [None]
  - INSOMNIA [None]
  - IVTH NERVE PARALYSIS [None]
  - MENTAL IMPAIRMENT [None]
  - MYASTHENIA GRAVIS CRISIS [None]
  - OSTEOPENIA [None]
  - PACEMAKER COMPLICATION [None]
  - POST PROCEDURAL COMPLICATION [None]
  - SUPRAVENTRICULAR EXTRASYSTOLES [None]
  - TACHYCARDIA [None]
  - TEMPERATURE INTOLERANCE [None]
  - TORSADE DE POINTES [None]
  - TRI-IODOTHYRONINE INCREASED [None]
  - TRI-IODOTHYRONINE UPTAKE DECREASED [None]
  - VENTRICULAR EXTRASYSTOLES [None]
